FAERS Safety Report 8031204-7 (Version None)
Quarter: 2011Q4

REPORT INFORMATION
  Report Type: 
  Country: None (occurrence: None)
  Receive Date: 20111202
  Receipt Date: 20100820
  Transmission Date: 20120403
  Serious: Yes (Other)
  Sender: FDA-Public Use
  Company Number: 2010SP045164

PATIENT
  Age: 25 Year
  Sex: Female
  Weight: 104.3273 kg

DRUGS (1)
  1. NUVARING [Suspect]
     Indication: CONTRACEPTION
     Dates: start: 20061101, end: 20080828

REACTIONS (4)
  - ASPARTATE AMINOTRANSFERASE INCREASED [None]
  - DEEP VEIN THROMBOSIS [None]
  - BLOOD CHOLESTEROL INCREASED [None]
  - HYPERTENSION [None]
